FAERS Safety Report 8962479 (Version 1)
Quarter: 2012Q4

REPORT INFORMATION
  Report Type: Spontaneous
  Country: NZ (occurrence: None)
  Receive Date: 20121206
  Receipt Date: 20121206
  Transmission Date: 20130627
  Serious: Yes (Hospitalization)
  Sender: FDA-Public Use
  Company Number: 2012ST000156

PATIENT
  Age: 63 Year
  Sex: Female

DRUGS (5)
  1. OMEPRAZOLE (OMEPRAZOLE) [Suspect]
     Indication: OESOPHAGEAL REFLUX
     Route: 048
  2. CILAZAPRIL [Concomitant]
  3. HYDROCHLOROTHIAZIDE [Concomitant]
  4. FLUTICASONE [Concomitant]
  5. SALBUTAMOL [Concomitant]

REACTIONS (4)
  - Hypocalcaemia [None]
  - Grand mal convulsion [None]
  - Hypomagnesaemia [None]
  - Chronic obstructive pulmonary disease [None]
